FAERS Safety Report 18585679 (Version 1)
Quarter: 2020Q4

REPORT INFORMATION
  Report Type: Spontaneous
  Country: US (occurrence: US)
  Receive Date: 20201206
  Receipt Date: 20201206
  Transmission Date: 20210114
  Serious: No
  Sender: FDA-Public Use
  Company Number: None

PATIENT
  Age: 45 Year
  Sex: Female
  Weight: 102.15 kg

DRUGS (4)
  1. TRIAMCINOLONE ACETONE CREAM [Concomitant]
  2. ZIMS MAX FREEZE [Suspect]
     Active Substance: LIDOCAINE\MENTHOL\MENTHYL SALICYLATE, (+/-)-
     Indication: MUSCLE STRAIN
     Route: 061
     Dates: start: 20201203, end: 20201203
  3. ZYRTECH [Concomitant]
  4. ALEVE [Concomitant]
     Active Substance: NAPROXEN SODIUM

REACTIONS (1)
  - Rash macular [None]

NARRATIVE: CASE EVENT DATE: 20201203
